FAERS Safety Report 6624279-0 (Version None)
Quarter: 2010Q1

REPORT INFORMATION
  Report Type: 
  Country: None (occurrence: None)
  Receive Date: 20100305
  Receipt Date: 20100217
  Transmission Date: 20100710
  Serious: Yes (Other)
  Sender: FDA-Public Use
  Company Number: FKO201000042

PATIENT
  Age: 38 Year
  Sex: Male

DRUGS (2)
  1. PACLITAXEL [Suspect]
     Indication: MALIGNANT MELANOMA
     Dosage: (225 MG/M2) INTRAVENOUS (NOT OTHERWISE SPECIFIED)
     Route: 042
  2. CARBOPLATIN (CARBOPLATIN) (CARSOPLATIN) [Concomitant]
     Indication: MALIGNANT MELANOMA

REACTIONS (2)
  - ALOPECIA [None]
  - FOLLICULITIS [None]
